FAERS Safety Report 9399840 (Version 2)
Quarter: 2013Q3

REPORT INFORMATION
  Report Type: Spontaneous
  Country: US (occurrence: None)
  Receive Date: 20130710
  Receipt Date: 20130814
  Transmission Date: 20140515
  Serious: Yes (Other)
  Sender: FDA-Public Use
  Company Number: DSU-2013-03855

PATIENT
  Age: 64 Year
  Sex: Female
  Weight: 82.99 kg

DRUGS (2)
  1. BENICAR [Suspect]
     Indication: PRODUCT USED FOR UNKNOWN INDICATION
     Route: 048
  2. LYRICA [Suspect]
     Indication: FIBROMYALGIA
     Route: 048
     Dates: start: 2005

REACTIONS (8)
  - Bedridden [None]
  - Coronary arterial stent insertion [None]
  - Gait disturbance [None]
  - Hypotonia [None]
  - Blood pressure decreased [None]
  - Fatigue [None]
  - Activities of daily living impaired [None]
  - Therapy cessation [None]
